FAERS Safety Report 10475781 (Version 2)
Quarter: 2015Q1

REPORT INFORMATION
  Report Type: Spontaneous
  Country: US (occurrence: US)
  Receive Date: 20140925
  Receipt Date: 20150212
  Transmission Date: 20150720
  Serious: No
  Sender: FDA-Public Use
  Company Number: US-GLAXOSMITHKLINE-A1072907A

PATIENT

DRUGS (2)
  1. EPIVIR HBV [Suspect]
     Active Substance: LAMIVUDINE
     Indication: HEPATITIS B
     Dosage: UNKNOWN DOSING
     Route: 065
     Dates: start: 20051128
  2. RYTHMOL SR [Suspect]
     Active Substance: PROPAFENONE HYDROCHLORIDE
     Indication: ATRIAL FIBRILLATION
     Dosage: UNKNOWN DOSING
     Route: 065
     Dates: start: 20100422

REACTIONS (4)
  - Malaise [Unknown]
  - Sciatica [Unknown]
  - Treatment noncompliance [Unknown]
  - Intervertebral disc protrusion [Unknown]
